FAERS Safety Report 5908769-1 (Version None)
Quarter: 2008Q4

REPORT INFORMATION
  Report Type: 
  Country: None (occurrence: None)
  Receive Date: 20081006
  Receipt Date: 20081003
  Transmission Date: 20090506
  Serious: Yes (Death)
  Sender: FDA-Public Use
  Company Number: CA-ASTRAZENECA-2008UW21600

PATIENT
  Sex: Male

DRUGS (11)
  1. SEROQUEL [Suspect]
     Indication: SCHIZOPHRENIA
     Dosage: 200 MG SUPPER, 800 MG HS = 1000 MG/DAY
     Route: 048
     Dates: start: 20020101
  2. SEROQUEL [Suspect]
     Indication: THINKING ABNORMAL
     Dosage: 200 MG SUPPER, 800 MG HS = 1000 MG/DAY
     Route: 048
     Dates: start: 20020101
  3. SEROQUEL [Suspect]
     Dosage: 200 MG SUPPER, 800 MG HS = 1000 MG/DAY
     Route: 048
     Dates: start: 20020101
  4. SEROQUEL [Suspect]
     Dosage: 200 MG SUPPER, 800 MG HS = 1000 MG/DAY REDUCED BY 100-200 MG
     Route: 048
  5. SEROQUEL [Suspect]
     Dosage: 200 MG SUPPER, 800 MG HS = 1000 MG/DAY REDUCED BY 100-200 MG
     Route: 048
  6. SEROQUEL [Suspect]
     Dosage: 200 MG SUPPER, 800 MG HS = 1000 MG/DAY REDUCED BY 100-200 MG
     Route: 048
  7. CLOPIXOL [Concomitant]
     Indication: THINKING ABNORMAL
     Route: 048
     Dates: start: 20020101
  8. CLOPIXOL [Concomitant]
     Route: 048
     Dates: start: 20020101
  9. CARBAMAZEPINE [Concomitant]
     Indication: MOOD ALTERED
     Route: 048
     Dates: start: 20020101
  10. CARBAMAZEPINE [Concomitant]
     Indication: MOOD SWINGS
     Route: 048
     Dates: start: 20020101
  11. CARBAMAZEPINE [Concomitant]
     Indication: ABNORMAL BEHAVIOUR
     Route: 048
     Dates: start: 20020101

REACTIONS (4)
  - HEAT STROKE [None]
  - LIPIDS ABNORMAL [None]
  - THYROID FUNCTION TEST ABNORMAL [None]
  - WEIGHT INCREASED [None]
